FAERS Safety Report 16372212 (Version 1)
Quarter: 2019Q2

REPORT INFORMATION
  Report Type: Spontaneous
  Country: DE (occurrence: DE)
  Receive Date: 20190530
  Receipt Date: 20190530
  Transmission Date: 20190711
  Serious: Yes (Life-Threatening, Hospitalization)
  Sender: FDA-Public Use
  Company Number: DE-TEVA-2019-DE-1056392

PATIENT
  Age: 50 Year
  Sex: Female
  Weight: 82 kg

DRUGS (7)
  1. PANTOPRAZOL [Concomitant]
     Active Substance: PANTOPRAZOLE SODIUM
     Dosage: DAILY DOSE: 20 MG MILLIGRAM(S) EVERY DAYS
     Route: 048
  2. VERAPAMIL [Concomitant]
     Active Substance: VERAPAMIL HYDROCHLORIDE
     Indication: ASTHMA
     Dosage: DAILY DOSE: 360 MG MILLIGRAM(S) EVERY DAYS
     Route: 048
  3. INUVAIR SPRAY [Concomitant]
     Indication: ASTHMA
     Route: 055
  4. DEXAMETHASON [Suspect]
     Active Substance: DEXAMETHASONE
     Dosage: DAILY DOSE: 4 MG MILLIGRAM(S) EVERY DAYS
     Route: 048
     Dates: start: 20190215
  5. L-THYROXIN [Concomitant]
     Active Substance: LEVOTHYROXINE SODIUM
     Indication: HYPOTHYROIDISM
     Route: 048
  6. ADCETRIS [Suspect]
     Active Substance: BRENTUXIMAB VEDOTIN
     Indication: HODGKIN^S DISEASE RECURRENT
     Dosage: DAILY DOSE: 3.6 MG MILLIGRAM(S) EVERY TOTAL
     Route: 042
     Dates: start: 20190215, end: 20190308
  7. MIRTAZAPIN [Concomitant]
     Active Substance: MIRTAZAPINE
     Indication: DEPRESSION
     Dosage: DAILY DOSE: 30 MG MILLIGRAM(S) EVERY DAYS
     Route: 048

REACTIONS (3)
  - Acute respiratory distress syndrome [Not Recovered/Not Resolved]
  - Pneumocystis jirovecii pneumonia [Not Recovered/Not Resolved]
  - Thrombocytopenia [Not Recovered/Not Resolved]

NARRATIVE: CASE EVENT DATE: 20190419
